FAERS Safety Report 7326080-1 (Version None)
Quarter: 2011Q1

REPORT INFORMATION
  Report Type: 
  Country: None (occurrence: None)
  Receive Date: 20110302
  Receipt Date: 20110218
  Transmission Date: 20110831
  Serious: Yes (Hospitalization)
  Sender: FDA-Public Use
  Company Number: ES-ROCHE-747365

PATIENT
  Sex: Female
  Weight: 71 kg

DRUGS (7)
  1. CYCLOPHOSPHAMIDE [Suspect]
     Dosage: FREQUENCY: D1Q21, LAST DOSE PRIOR TO SAE: 24 NOVEMBER 2010
     Route: 042
     Dates: start: 20101124
  2. TRASTUZUMAB [Suspect]
     Dosage: FREQUENCY: D +Q21, LOADING DOSE
     Route: 042
     Dates: start: 20101124
  3. PERTUZUMAB [Suspect]
     Dosage: FREQUENCY:D+Q21
     Route: 042
     Dates: start: 20101124
  4. EPIRUBICIN [Suspect]
     Dosage: LAST DOSE PRIOR TO SAE: 24 NOVEMBER 2010, FREQUENCY:D+Q21
     Route: 042
     Dates: start: 20101124
  5. FLUOROURACIL [Suspect]
     Dosage: REQUENCY: D1 AND 21, LAST DOSE PRIOR TO SAE: 24 NOVEMBER 2010
     Route: 042
     Dates: start: 20101124
  6. PRIMPERAN TAB [Concomitant]
     Dosage: TOTAL DAILY DOSE: IF NECESSARY
     Dates: start: 20101124
  7. LORAZEPAM [Concomitant]
     Dosage: TOTAL DAILY DOSE: IF NECESSARY

REACTIONS (2)
  - FEBRILE NEUTROPENIA [None]
  - LEUKOPENIA [None]
